FAERS Safety Report 8953364 (Version 1)
Quarter: 2012Q4

REPORT INFORMATION
  Report Type: 
  Country: MX (occurrence: MX)
  Receive Date: 20121206
  Receipt Date: 20121206
  Transmission Date: 20130627
  Serious: Yes (Disabling, Other)
  Sender: FDA-Public Use
  Company Number: MX-JNJFOC-2004100571

PATIENT
  Age: 40 Year
  Sex: Female

DRUGS (2)
  1. PSEUDOEPHEDRINE [Suspect]
     Route: 048
  2. PSEUDOEPHEDRINE [Suspect]
     Indication: PRODUCT USED FOR UNKNOWN INDICATION
     Dosage: Daily Dose Text: 180 MG ONCE
     Route: 048

REACTIONS (2)
  - Cerebrovascular accident [Not Recovered/Not Resolved]
  - Haemorrhage [Not Recovered/Not Resolved]
